FAERS Safety Report 23332248 (Version 1)
Quarter: 2023Q4

REPORT INFORMATION
  Report Type: Report from Study
  Country: BR (occurrence: BR)
  Receive Date: 20231222
  Receipt Date: 20231222
  Transmission Date: 20240110
  Serious: Yes (Hospitalization)
  Sender: FDA-Public Use
  Company Number: BR-AstraZeneca-2023A263150

PATIENT
  Sex: Female

DRUGS (1)
  1. SYNAGIS [Suspect]
     Active Substance: PALIVIZUMAB
     Indication: Product used for unknown indication
     Dosage: RECEIVED 4 DOSES
     Route: 030
     Dates: start: 2023

REACTIONS (3)
  - Bronchiolitis [Unknown]
  - Pneumonia [Unknown]
  - Medication error [Unknown]

NARRATIVE: CASE EVENT DATE: 20230101
